FAERS Safety Report 4951233-7 (Version None)
Quarter: 2006Q1

REPORT INFORMATION
  Report Type: 
  Country: None (occurrence: None)
  Receive Date: 20060317
  Receipt Date: 20060302
  Transmission Date: 20060701
  Serious: Yes (Hospitalization, Other)
  Sender: FDA-Public Use
  Company Number: A-CH2006-11724

PATIENT
  Age: 67 Year
  Sex: Female

DRUGS (8)
  1. TRACLEER [Suspect]
     Indication: PULMONARY HYPERTENSION
     Dosage: 125 + 62.5 MG, BID, ORAL
     Route: 048
     Dates: start: 20041207, end: 20050106
  2. TRACLEER [Suspect]
     Indication: PULMONARY HYPERTENSION
     Dosage: 125 + 62.5 MG, BID, ORAL
     Route: 048
     Dates: start: 20050107, end: 20060124
  3. TRACLEER [Suspect]
     Indication: PULMONARY HYPERTENSION
     Dosage: 125 + 62.5 MG, BID, ORAL
     Route: 048
     Dates: start: 20060125, end: 20060209
  4. LESCOL [Suspect]
     Dates: start: 20050901
  5. PREVISCAN 9FLUINDIONE) [Concomitant]
  6. LASIX [Concomitant]
  7. INIPOMP (PANTOPRAZOLE) [Concomitant]
  8. ALDACTONE [Concomitant]

REACTIONS (1)
  - CYTOLYTIC HEPATITIS [None]
